FAERS Safety Report 5628376-8 (Version None)
Quarter: 2008Q1

REPORT INFORMATION
  Report Type: 
  Country: None (occurrence: None)
  Receive Date: 20080215
  Receipt Date: 20080206
  Transmission Date: 20080703
  Serious: Yes (Other)
  Sender: FDA-Public Use
  Company Number: US-PFIZER INC-2007103962

PATIENT
  Age: 51 Year
  Sex: Female

DRUGS (2)
  1. ZYVOX [Suspect]
     Indication: PNEUMONIA STAPHYLOCOCCAL
     Route: 042
  2. SEPTRA DS [Concomitant]
     Route: 048

REACTIONS (1)
  - TOOTH DISCOLOURATION [None]
